FAERS Safety Report 6971923-4 (Version None)
Quarter: 2010Q3

REPORT INFORMATION
  Report Type: 
  Country: None (occurrence: None)
  Receive Date: 20100908
  Receipt Date: 20100830
  Transmission Date: 20110219
  Serious: Yes (Other)
  Sender: FDA-Public Use
  Company Number: US-SANOFI-AVENTIS-2010SA045932

PATIENT
  Age: 74 Year
  Sex: Male
  Weight: 72.57 kg

DRUGS (7)
  1. LANTUS [Suspect]
     Dosage: DOSE:14 UNIT(S)
     Route: 058
  2. LANTUS [Suspect]
     Dosage: DOSE:16 UNIT(S)
     Route: 058
  3. CAFFEINE [Suspect]
  4. COREG [Concomitant]
     Route: 048
     Dates: start: 19950101
  5. QUINAPRIL [Concomitant]
     Route: 048
  6. LASIX [Concomitant]
     Route: 048
  7. BYETTA [Concomitant]
     Route: 048

REACTIONS (7)
  - BLOOD GLUCOSE DECREASED [None]
  - CONTUSION [None]
  - DIZZINESS [None]
  - DRUG INTERACTION [None]
  - HYPOGLYCAEMIC UNCONSCIOUSNESS [None]
  - MALAISE [None]
  - ROAD TRAFFIC ACCIDENT [None]
